FAERS Safety Report 10155226 (Version 1)
Quarter: 2014Q2

REPORT INFORMATION
  Report Type: Spontaneous
  Country: US (occurrence: US)
  Receive Date: 20140506
  Receipt Date: 20140506
  Transmission Date: 20141212
  Serious: No
  Sender: FDA-Public Use
  Company Number: US-TEVA-399498USA

PATIENT
  Sex: Female

DRUGS (1)
  1. CLARAVIS [Suspect]
     Route: 048
     Dates: end: 20130215

REACTIONS (1)
  - Laboratory test abnormal [Unknown]
